FAERS Safety Report 4860957-1 (Version None)
Quarter: 2005Q4

REPORT INFORMATION
  Report Type: 
  Country: None (occurrence: None)
  Receive Date: 20051220
  Receipt Date: 20051017
  Transmission Date: 20060501
  Serious: Yes (Death, Hospitalization, Other)
  Sender: FDA-Public Use
  Company Number: TH-BRISTOL-MYERS SQUIBB COMPANY-13156898

PATIENT
  Age: 56 Year
  Sex: Male

DRUGS (4)
  1. STOCRIN TABS 600 MG [Suspect]
     Indication: HIV INFECTION
     Route: 048
     Dates: start: 20050912, end: 20051026
  2. SULFAMETHOXAZOLE + TRIMETHOPRIM [Suspect]
     Dates: start: 20050701
  3. LAMIVUDINE [Suspect]
     Indication: HIV INFECTION
     Dates: start: 20050912
  4. TENOFOVIR [Suspect]
     Indication: HIV INFECTION
     Dates: start: 20050912

REACTIONS (6)
  - ALANINE AMINOTRANSFERASE INCREASED [None]
  - ASPARTATE AMINOTRANSFERASE INCREASED [None]
  - GAMMA-GLUTAMYLTRANSFERASE INCREASED [None]
  - HEPATIC FAILURE [None]
  - HEPATITIS [None]
  - UPPER GASTROINTESTINAL HAEMORRHAGE [None]
